FAERS Safety Report 8437522-2 (Version None)
Quarter: 2012Q2

REPORT INFORMATION
  Report Type: 
  Country: None (occurrence: None)
  Receive Date: 20120614
  Receipt Date: 20120416
  Transmission Date: 20120825
  Serious: No
  Sender: FDA-Public Use
  Company Number: US-AMGEN-USASP2012023864

PATIENT
  Age: 79 Year
  Sex: Female

DRUGS (7)
  1. PROLIA [Suspect]
     Indication: OSTEOPOROSIS POSTMENOPAUSAL
     Dosage: 60 MG, Q6MO
  2. ZOCOR [Concomitant]
  3. VITAMIN D [Concomitant]
  4. TRAMADOL HCL [Concomitant]
  5. ASCOLIN [Concomitant]
  6. NEXIUM [Concomitant]
  7. CALCIUM [Concomitant]

REACTIONS (7)
  - ASTHENIA [None]
  - WEIGHT DECREASED [None]
  - SENSATION OF HEAVINESS [None]
  - ABASIA [None]
  - MYALGIA [None]
  - BONE PAIN [None]
  - STRESS [None]
